FAERS Safety Report 15083912 (Version 3)
Quarter: 2018Q3

REPORT INFORMATION
  Report Type: Report from Study
  Country: US (occurrence: US)
  Receive Date: 20180628
  Receipt Date: 20180925
  Transmission Date: 20181010
  Serious: Yes (Other)
  Sender: FDA-Public Use
  Company Number: US-CLOVIS ONCOLOGY-CLO-2018-000578

PATIENT
  Age: 62 Year
  Sex: Female

DRUGS (3)
  1. RUBRACA [Suspect]
     Active Substance: RUCAPARIB CAMSYLATE
     Dosage: 600 MG, BID
     Route: 048
     Dates: start: 20180602
  2. RUBRACA [Suspect]
     Active Substance: RUCAPARIB CAMSYLATE
     Indication: OVARIAN CANCER
     Dosage: 600 MG, BID
     Route: 048
     Dates: start: 20180501
  3. RUBRACA [Suspect]
     Active Substance: RUCAPARIB CAMSYLATE
     Dosage: 500 MG, BID
     Route: 048
     Dates: start: 20180827

REACTIONS (18)
  - Renal failure [Unknown]
  - Neutropenia [Recovering/Resolving]
  - Tumour marker increased [Unknown]
  - Fatigue [Not Recovered/Not Resolved]
  - Diarrhoea [Unknown]
  - Anxiety [Unknown]
  - Dysphonia [Not Recovered/Not Resolved]
  - Cough [Not Recovered/Not Resolved]
  - Pharyngitis [Recovered/Resolved]
  - Sinusitis [Recovered/Resolved]
  - Nausea [Unknown]
  - Depression [Unknown]
  - Blood creatinine increased [Recovering/Resolving]
  - Laryngitis [Recovering/Resolving]
  - Dysgeusia [Unknown]
  - Decreased appetite [Unknown]
  - Anaemia [Recovering/Resolving]
  - Drug dose omission [Unknown]

NARRATIVE: CASE EVENT DATE: 2018
